FAERS Safety Report 6899810-0 (Version None)
Quarter: 2010Q3

REPORT INFORMATION
  Report Type: 
  Country: None (occurrence: None)
  Receive Date: 20100803
  Receipt Date: 20100719
  Transmission Date: 20110219
  Serious: No
  Sender: FDA-Public Use
  Company Number: US-B.I. PHARMACEUTICALS,INC./RIDGEFIELD-2010-BP-08432BP

PATIENT
  Age: 81 Year
  Sex: Female

DRUGS (3)
  1. COMBIVENT [Suspect]
     Indication: ASTHMA
     Route: 055
     Dates: start: 19970101
  2. ADVAIR DISKUS 100/50 [Concomitant]
     Indication: ASTHMA
  3. MULTI-VITAMIN [Concomitant]
     Indication: PROPHYLAXIS

REACTIONS (9)
  - ARTHRITIS [None]
  - CONSTIPATION [None]
  - DEPRESSION [None]
  - GASTROOESOPHAGEAL REFLUX DISEASE [None]
  - GLOSSODYNIA [None]
  - HAEMATOCRIT DECREASED [None]
  - OSTEOPOROSIS [None]
  - PARKINSON'S DISEASE [None]
  - THROAT IRRITATION [None]
